FAERS Safety Report 10025294 (Version 1)
Quarter: 2014Q1

REPORT INFORMATION
  Report Type: Spontaneous
  Country: US (occurrence: None)
  Receive Date: 20140304
  Receipt Date: 20140304
  Transmission Date: 20141002
  Serious: Yes (Other)
  Sender: FDA-Public Use
  Company Number: RB-50367-2013

PATIENT
  Age: 41 Year
  Sex: Female

DRUGS (6)
  1. SUBOXONE [Suspect]
     Indication: DRUG DEPENDENCE
     Dosage: (32 MG, SUBOXONE FILM SUBLINGUAL)?
     Route: 060
     Dates: start: 20130208, end: 20130208
  2. SUBOXONE [Suspect]
     Indication: DRUG DEPENDENCE
     Route: 060
  3. ANALGESICS [Concomitant]
  4. PROMETHAZINE [Concomitant]
  5. KLONOPIN [Concomitant]
  6. AMBIEN [Concomitant]

REACTIONS (7)
  - Liver disorder [None]
  - Fluid retention [None]
  - Drug withdrawal syndrome [None]
  - Oral administration complication [None]
  - Vomiting [None]
  - Regurgitation [None]
  - Therapeutic response decreased [None]
